FAERS Safety Report 19994637 (Version 1)
Quarter: 2021Q4

REPORT INFORMATION
  Report Type: Spontaneous
  Country: US (occurrence: US)
  Receive Date: 20211022
  Receipt Date: 20211022
  Transmission Date: 20220303
  Serious: Yes (Hospitalization)
  Sender: FDA-Public Use
  Company Number: None

PATIENT
  Age: 68 Year
  Sex: Male
  Weight: 115.2 kg

DRUGS (22)
  1. CISPLATIN [Suspect]
     Active Substance: CISPLATIN
     Dates: end: 20200928
  2. ALLOPURINOL [Concomitant]
     Active Substance: ALLOPURINOL
  3. ANORO ELLIPTA [Concomitant]
     Active Substance: UMECLIDINIUM BROMIDE\VILANTEROL TRIFENATATE
  4. ASPIRIN [Concomitant]
     Active Substance: ASPIRIN
  5. CARVEDILOL [Concomitant]
     Active Substance: CARVEDILOL
  6. CLOPIDOGREL [Concomitant]
     Active Substance: CLOPIDOGREL BISULFATE
  7. CRESTOR [Concomitant]
     Active Substance: ROSUVASTATIN CALCIUM
  8. DEXAMETHASONE [Concomitant]
     Active Substance: DEXAMETHASONE
  9. DILTIAZEM [Concomitant]
     Active Substance: DILTIAZEM
  10. ELIQUIS [Concomitant]
     Active Substance: APIXABAN
  11. FLOMAX [Concomitant]
     Active Substance: TAMSULOSIN HYDROCHLORIDE
  12. FLUCONAZOLE [Concomitant]
     Active Substance: FLUCONAZOLE
  13. GABAPENTIN [Concomitant]
     Active Substance: GABAPENTIN
  14. JARDIANCE [Concomitant]
     Active Substance: EMPAGLIFLOZIN
  15. LANTUS [Concomitant]
     Active Substance: INSULIN GLARGINE
  16. LISINOPRIL [Concomitant]
     Active Substance: LISINOPRIL
  17. Lotrimin cream [Concomitant]
  18. METOPROLOL [Concomitant]
     Active Substance: METOPROLOL
  19. PEPCID [Concomitant]
     Active Substance: FAMOTIDINE
  20. HYDROCORTISONE [Concomitant]
     Active Substance: HYDROCORTISONE
  21. HYDROCHLOROTHIAZIDE\TRIAMTERENE [Concomitant]
     Active Substance: HYDROCHLOROTHIAZIDE\TRIAMTERENE
  22. TRULICITY [Concomitant]
     Active Substance: DULAGLUTIDE

REACTIONS (12)
  - Vascular device infection [None]
  - Sepsis [None]
  - Fungal skin infection [None]
  - Skin candida [None]
  - Erythema [None]
  - Pruritus [None]
  - Lymphadenopathy [None]
  - Necrotic lymphadenopathy [None]
  - Therapeutic response decreased [None]
  - Catheter culture positive [None]
  - Pseudomonas infection [None]
  - Klebsiella infection [None]

NARRATIVE: CASE EVENT DATE: 20201027
